FAERS Safety Report 6547399-8 (Version None)
Quarter: 2010Q1

REPORT INFORMATION
  Report Type: 
  Country: None (occurrence: None)
  Receive Date: 20100122
  Receipt Date: 20100114
  Transmission Date: 20100710
  Serious: Yes (Life-Threatening, Hospitalization, Other)
  Sender: FDA-Public Use
  Company Number: PHEH2008US03542

PATIENT
  Sex: Female

DRUGS (25)
  1. ZELNORM [Suspect]
     Dosage: 6 MG PO PRN QD
     Dates: start: 20041206, end: 20060901
  2. ASPIRIN [Concomitant]
     Dosage: 325 QD
  3. PLAVIX [Concomitant]
     Dosage: 75MG QD
  4. VASOTEC [Concomitant]
     Dosage: 2.5MG QD
  5. METOPROLOL TARTRATE [Concomitant]
     Dosage: 25MG BID
  6. PROTONIX [Concomitant]
     Dosage: 40MG QD
  7. LIPITOR [Concomitant]
     Dosage: 40MG QD HS
  8. ZETIA [Concomitant]
     Dosage: 10MG QD
  9. ATIVAN [Concomitant]
     Dosage: 1MG QD HS
  10. ZOCOR [Concomitant]
     Dosage: 80MG PO QD HS
  11. NITROGLYCERIN [Concomitant]
     Dosage: 1 SL Q 5 MIN X3
     Route: 060
  12. HYDROCHLOROTHIAZIDE [Concomitant]
     Dosage: 25MG QD
  13. RESTORIL [Concomitant]
     Dosage: 1-2 CAPS QD HS
  14. ALTACE [Concomitant]
     Dosage: 5MG QD
     Dates: start: 20021028
  15. NEURONTIN [Concomitant]
     Dosage: 300 BID
  16. CIPRO [Concomitant]
     Dosage: 500MG
     Dates: start: 20021108
  17. PERCOCET [Concomitant]
     Dosage: 5/325MG Q4-6 HRS
  18. CRESTOR [Concomitant]
     Dosage: 10MG QD
  19. KEFLEX [Concomitant]
     Dosage: 500MG TID
  20. B COMPLEX ELX [Concomitant]
     Dosage: 75MG QD
  21. NEXIUM [Concomitant]
     Dosage: 40MG QD
  22. FLONASE [Concomitant]
     Dosage: QD
  23. LEVAQUIN [Concomitant]
     Dosage: 1 PO QD
  24. TOPROL-XL [Concomitant]
     Dosage: PO BID
  25. ENALAPRIL MALEATE [Concomitant]
     Dosage: PO Q AM

REACTIONS (16)
  - ABDOMINAL DISTENSION [None]
  - ANGINA PECTORIS [None]
  - CARDIAC FAILURE [None]
  - CHEST PAIN [None]
  - CONSTIPATION [None]
  - DIZZINESS [None]
  - DYSPNOEA [None]
  - EMBOLISM [None]
  - GASTRITIS [None]
  - GASTROINTESTINAL HAEMORRHAGE [None]
  - HYPOTENSION [None]
  - INJURY [None]
  - MELAENA [None]
  - MYOCARDIAL INFARCTION [None]
  - RENAL CANCER [None]
  - VENOUS INSUFFICIENCY [None]
